FAERS Safety Report 9646046 (Version 1)
Quarter: 2013Q4

REPORT INFORMATION
  Report Type: Spontaneous
  Country: US (occurrence: None)
  Receive Date: 20131023
  Receipt Date: 20131023
  Transmission Date: 20140711
  Serious: Yes (Hospitalization)
  Sender: FDA-Public Use
  Company Number: 2013-US-001895

PATIENT
  Age: 36 Year
  Sex: Female

DRUGS (1)
  1. PRIATT (ZICONOTIDE) INTRATHECAL INFUSION [Suspect]
     Dosage: 3 UG, BOLUS, INTRATHECAL
     Dates: start: 20131002

REACTIONS (2)
  - Photophobia [None]
  - Meningitis [None]
